FAERS Safety Report 10026105 (Version 1)
Quarter: 2014Q1

REPORT INFORMATION
  Report Type: Spontaneous
  Country: GB (occurrence: GB)
  Receive Date: 20140320
  Receipt Date: 20140320
  Transmission Date: 20141002
  Serious: Yes (Hospitalization)
  Sender: FDA-Public Use
  Company Number: GB-BAUSCH-BL-2014-001288

PATIENT
  Age: 82 Year
  Sex: Male
  Weight: 65.31 kg

DRUGS (9)
  1. PREDNISOLONE [Suspect]
     Indication: AUTOIMMUNE DISORDER
  2. PREDNISOLONE [Suspect]
  3. AMIAS [Concomitant]
     Indication: MYOCARDIAL INFARCTION
  4. ASPIRIN [Concomitant]
     Indication: PRODUCT USED FOR UNKNOWN INDICATION
  5. BUMETANIDE [Concomitant]
     Indication: MYOCARDIAL INFARCTION
  6. CARDICOR [Concomitant]
     Indication: MYOCARDIAL INFARCTION
  7. FOLIC ACID [Concomitant]
     Indication: RED BLOOD CELL COUNT
  8. INFLUENZA VIRUS [Concomitant]
     Indication: PRODUCT USED FOR UNKNOWN INDICATION
     Dates: start: 20131111, end: 20131111
  9. OMEPRAZOLE [Concomitant]
     Indication: PROPHYLAXIS

REACTIONS (1)
  - Type 2 diabetes mellitus [Not Recovered/Not Resolved]
